FAERS Safety Report 13454758 (Version 1)
Quarter: 2017Q2

REPORT INFORMATION
  Report Type: Spontaneous
  Country: US (occurrence: US)
  Receive Date: 20170418
  Receipt Date: 20170418
  Transmission Date: 20170830
  Serious: No
  Sender: FDA-Public Use
  Company Number: None

PATIENT
  Sex: Female

DRUGS (2)
  1. RASUVO [Suspect]
     Active Substance: METHOTREXATE SODIUM
     Indication: RHEUMATOID ARTHRITIS
     Route: 058
     Dates: start: 20170208, end: 20170407
  2. HUMIRA [Suspect]
     Active Substance: ADALIMUMAB
     Indication: RHEUMATOID ARTHRITIS
     Route: 058
     Dates: start: 20160824

REACTIONS (8)
  - Dizziness [None]
  - Headache [None]
  - Decreased appetite [None]
  - Myalgia [None]
  - Oropharyngeal pain [None]
  - Weight decreased [None]
  - Dyspnoea [None]
  - Palpitations [None]
